FAERS Safety Report 16868721 (Version 2)
Quarter: 2019Q4

REPORT INFORMATION
  Report Type: Spontaneous
  Country: US (occurrence: US)
  Receive Date: 20190930
  Receipt Date: 20191003
  Transmission Date: 20200122
  Serious: Yes (Other)
  Sender: FDA-Public Use
  Company Number: US-PFIZER INC-2019415899

PATIENT
  Age: 55 Year
  Sex: Female

DRUGS (2)
  1. ZITHROMAX [Suspect]
     Active Substance: AZITHROMYCIN DIHYDRATE
     Indication: INFECTION
     Dosage: 3 DF, DAILY(TOOK TWO OF THE PILLS IN THE MORNING AND ANOTHER ONE AT 01:00 AM)
  2. XELJANZ [Concomitant]
     Active Substance: TOFACITINIB CITRATE
     Dosage: UNK

REACTIONS (7)
  - Condition aggravated [Unknown]
  - Dysphagia [Unknown]
  - Drug ineffective [Unknown]
  - Intentional product misuse [Unknown]
  - Pharyngeal swelling [Unknown]
  - Oropharyngeal pain [Unknown]
  - Pharyngitis [Unknown]
